FAERS Safety Report 9281131 (Version 1)
Quarter: 2013Q2

REPORT INFORMATION
  Report Type: Spontaneous
  Country: US (occurrence: None)
  Receive Date: 20130508
  Receipt Date: 20130508
  Transmission Date: 20140414
  Serious: Yes (Hospitalization)
  Sender: FDA-Public Use
  Company Number: None

PATIENT
  Age: 62 Year
  Sex: Female

DRUGS (2)
  1. METFORMIN [Suspect]
     Route: 048
     Dates: start: 20120918, end: 20121110
  2. INSULIN [Suspect]
     Dosage: SQ
     Dates: start: 20120918, end: 20120918

REACTIONS (2)
  - Hypoglycaemia [None]
  - Fall [None]
